FAERS Safety Report 6071356-1 (Version None)
Quarter: 2009Q1

REPORT INFORMATION
  Report Type: 
  Country: None (occurrence: None)
  Receive Date: 20090204
  Receipt Date: 20090127
  Transmission Date: 20090719
  Serious: Yes (Hospitalization)
  Sender: FDA-Public Use
  Company Number: GXKR2009US01188

PATIENT
  Age: 53 Year
  Sex: Male

DRUGS (2)
  1. AZITHROMYCIN [Suspect]
  2. CEFTRIAXONE [Suspect]

REACTIONS (3)
  - ALANINE AMINOTRANSFERASE INCREASED [None]
  - BLOOD ALKALINE PHOSPHATASE INCREASED [None]
  - HEPATOCELLULAR INJURY [None]
